FAERS Safety Report 5238299-4 (Version None)
Quarter: 2007Q1

REPORT INFORMATION
  Report Type: 
  Country: None (occurrence: None)
  Receive Date: 20070215
  Receipt Date: 20070205
  Transmission Date: 20070707
  Serious: Yes (Death, Other)
  Sender: FDA-Public Use
  Company Number: PHBS2007JP01966

PATIENT
  Age: 45 Year
  Sex: Male

DRUGS (4)
  1. RADIATION [Concomitant]
  2. METHOTREXATE [Concomitant]
     Indication: BONE MARROW TRANSPLANT
     Route: 065
  3. CYCLOSPORINE [Suspect]
     Indication: BONE MARROW TRANSPLANT
     Route: 065
  4. CYCLOSPORINE [Suspect]
     Dosage: 1 MG/KG/D
     Route: 065

REACTIONS (6)
  - COLITIS [None]
  - DIARRHOEA [None]
  - HAEMATOCHEZIA [None]
  - PNEUMOCYSTIS JIROVECI PNEUMONIA [None]
  - PYREXIA [None]
  - RASH [None]
